FAERS Safety Report 6849935-0 (Version None)
Quarter: 2010Q3

REPORT INFORMATION
  Report Type: 
  Country: None (occurrence: None)
  Receive Date: 20100716
  Receipt Date: 20071008
  Transmission Date: 20110219
  Serious: Yes (Other)
  Sender: FDA-Public Use
  Company Number: US-PFIZER INC-2007085318

PATIENT

DRUGS (1)
  1. CHANTIX [Suspect]

REACTIONS (2)
  - ABNORMAL DREAMS [None]
  - HALLUCINATION [None]
